FAERS Safety Report 14425515 (Version 1)
Quarter: 2018Q1

REPORT INFORMATION
  Report Type: Spontaneous
  Country: US (occurrence: US)
  Receive Date: 20180123
  Receipt Date: 20180123
  Transmission Date: 20180509
  Serious: Yes (Hospitalization, Disabling, Other)
  Sender: FDA-Public Use
  Company Number: US-009507513-1007USA03942

PATIENT
  Sex: Female
  Weight: 83.01 kg

DRUGS (4)
  1. FOSAMAX [Suspect]
     Active Substance: ALENDRONATE SODIUM
     Indication: OSTEOPOROSIS PROPHYLAXIS
     Dosage: 70 MG, QW
     Route: 048
     Dates: start: 20010601, end: 20080103
  2. ACTONEL [Suspect]
     Active Substance: RISEDRONATE SODIUM
     Dosage: 150 MG, QM
     Route: 048
     Dates: start: 200904, end: 20090808
  3. FOSAMAX PLUS D [Suspect]
     Active Substance: ALENDRONATE SODIUM\CHOLECALCIFEROL
     Dosage: 70 MG/5600
     Route: 048
     Dates: start: 20080228, end: 20090301
  4. ALENDRONATE SODIUM. [Suspect]
     Active Substance: ALENDRONATE SODIUM
     Dosage: 70 MG, UNK
     Route: 048
     Dates: start: 20090201, end: 20090728

REACTIONS (56)
  - Fibromyalgia [Not Recovered/Not Resolved]
  - Fracture nonunion [Not Recovered/Not Resolved]
  - Patellofemoral pain syndrome [Unknown]
  - Urticaria [Unknown]
  - Personality change [Unknown]
  - Complication associated with device [Unknown]
  - Back pain [Unknown]
  - Joint swelling [Unknown]
  - Amnesia [Unknown]
  - Muscle spasms [Unknown]
  - Rhinorrhoea [Unknown]
  - Pain in jaw [Unknown]
  - Gastrooesophageal reflux disease [Unknown]
  - Depression [Not Recovered/Not Resolved]
  - Hypotension [Unknown]
  - Postoperative wound infection [Unknown]
  - Hypersensitivity [Unknown]
  - Dermatitis allergic [Unknown]
  - Tongue discolouration [Unknown]
  - Streptococcal infection [Unknown]
  - Dyspepsia [Unknown]
  - Carpal tunnel syndrome [Unknown]
  - Liver disorder [Unknown]
  - Anxiety [Unknown]
  - Spinal disorder [Unknown]
  - Osteomyelitis chronic [Unknown]
  - Breast calcifications [Unknown]
  - Facet joint syndrome [Unknown]
  - Dyslipidaemia [Unknown]
  - Postoperative wound infection [Unknown]
  - Varicose vein [Unknown]
  - Hypoxia [Unknown]
  - Femur fracture [Unknown]
  - Enterococcal infection [Unknown]
  - Weight increased [Unknown]
  - Cellulitis [Unknown]
  - Scoliosis [Unknown]
  - Aortic arteriosclerosis [Unknown]
  - Spinal disorder [Unknown]
  - Intervertebral disc protrusion [Unknown]
  - Headache [Unknown]
  - Insomnia [Unknown]
  - Stress fracture [Unknown]
  - Constipation [Unknown]
  - Osteoporosis [Unknown]
  - Low turnover osteopathy [Unknown]
  - Hiatus hernia [Unknown]
  - Staphylococcal infection [Unknown]
  - Bone disorder [Unknown]
  - Urinary tract infection [Unknown]
  - Hypotension [Unknown]
  - Seroma [Unknown]
  - Spinal osteoarthritis [Unknown]
  - Device failure [Unknown]
  - Drug hypersensitivity [Unknown]
  - Headache [Unknown]

NARRATIVE: CASE EVENT DATE: 2002
